FAERS Safety Report 5268600-7 (Version None)
Quarter: 2007Q1

REPORT INFORMATION
  Report Type: 
  Country: None (occurrence: None)
  Receive Date: 20070315
  Receipt Date: 20070315
  Transmission Date: 20070707
  Serious: Yes (Life-Threatening)
  Sender: FDA-Public Use
  Company Number: None

PATIENT
  Age: 27 Year
  Sex: Male
  Weight: 108 kg

DRUGS (1)
  1. DEXFERRUM [Suspect]
     Indication: ANAEMIA
     Dosage: 25 MG  ONE TIME  IV
     Route: 042
     Dates: start: 20070216, end: 20070216

REACTIONS (7)
  - AURICULAR SWELLING [None]
  - INFUSION RELATED REACTION [None]
  - LIP SWELLING [None]
  - OEDEMA MOUTH [None]
  - OXYGEN SATURATION DECREASED [None]
  - RASH [None]
  - URTICARIA [None]
